FAERS Safety Report 5624113-1 (Version None)
Quarter: 2008Q1

REPORT INFORMATION
  Report Type: 
  Country: None (occurrence: None)
  Receive Date: 20080213
  Receipt Date: 20070918
  Transmission Date: 20080703
  Serious: No
  Sender: FDA-Public Use
  Company Number: US-KINGPHARMUSA00001-K200701212

PATIENT

DRUGS (2)
  1. EPIPEN JR. [Suspect]
     Dosage: .15 MG, SINGLE
     Dates: start: 20070501, end: 20070501
  2. ALLEGRA [Concomitant]
     Dosage: UNK, QD

REACTIONS (2)
  - ACCIDENTAL EXPOSURE [None]
  - NO ADVERSE EVENT [None]
